FAERS Safety Report 7046207-9 (Version None)
Quarter: 2010Q4

REPORT INFORMATION
  Report Type: 
  Country: None (occurrence: None)
  Receive Date: 20101014
  Receipt Date: 20101007
  Transmission Date: 20110411
  Serious: Yes (Death, Hospitalization)
  Sender: FDA-Public Use
  Company Number: A0764582A

PATIENT
  Age: 70 Year
  Sex: Male
  Weight: 95.5 kg

DRUGS (4)
  1. AVANDIA [Suspect]
     Dosage: 4MG SEE DOSAGE TEXT
     Route: 048
     Dates: start: 20030501, end: 20051028
  2. LIPITOR [Concomitant]
  3. LISINOPRIL [Concomitant]
  4. METFORMIN [Concomitant]

REACTIONS (2)
  - CORONARY ARTERY DISEASE [None]
  - SUDDEN CARDIAC DEATH [None]
